FAERS Safety Report 6795434-4 (Version None)
Quarter: 2010Q2

REPORT INFORMATION
  Report Type: 
  Country: None (occurrence: None)
  Receive Date: 20100625
  Receipt Date: 20100616
  Transmission Date: 20101027
  Serious: Yes (Hospitalization)
  Sender: FDA-Public Use
  Company Number: JP-ASTRAZENECA-2010SE29069

PATIENT
  Age: 74 Year
  Sex: Male

DRUGS (6)
  1. BLOPRESS [Suspect]
     Indication: ARRHYTHMIA PROPHYLAXIS
     Route: 048
     Dates: start: 20090201, end: 20090529
  2. TAKEPRON [Concomitant]
     Route: 065
  3. SUNRYTHM [Concomitant]
     Route: 065
  4. ASPIRIN [Concomitant]
     Route: 048
  5. PRONON [Concomitant]
     Route: 048
     Dates: end: 20090529
  6. URIEF [Concomitant]
     Route: 048

REACTIONS (2)
  - HYPONATRAEMIA [None]
  - INAPPROPRIATE ANTIDIURETIC HORMONE SECRETION [None]
